FAERS Safety Report 7047308-1 (Version None)
Quarter: 2010Q4

REPORT INFORMATION
  Report Type: 
  Country: None (occurrence: None)
  Receive Date: 20101015
  Receipt Date: 20101004
  Transmission Date: 20110411
  Serious: Yes (Other)
  Sender: FDA-Public Use
  Company Number: PHHY2010NL58253

PATIENT
  Sex: Male

DRUGS (3)
  1. ZOMETA [Suspect]
     Dosage: 4 MG/5 ML
     Route: 042
     Dates: start: 20100706
  2. ZOMETA [Suspect]
     Dosage: 4 MG/5 ML
     Dates: start: 20100805
  3. ZOMETA [Suspect]
     Dosage: 4 MG/5 ML
     Dates: start: 20100902

REACTIONS (3)
  - BACK PAIN [None]
  - CONSTIPATION [None]
  - ROAD TRAFFIC ACCIDENT [None]
